FAERS Safety Report 13337040 (Version 1)
Quarter: 2017Q1

REPORT INFORMATION
  Report Type: Spontaneous
  Country: US (occurrence: US)
  Receive Date: 20170314
  Receipt Date: 20170314
  Transmission Date: 20170428
  Serious: Yes (Other)
  Sender: FDA-Public Use
  Company Number: US-JAZZ-2016-US-004654

PATIENT
  Age: 37 Year
  Sex: Male

DRUGS (2)
  1. CLOZAPINE. [Suspect]
     Active Substance: CLOZAPINE
     Dosage: UNK MG, SINGLE
     Route: 048
  2. METHADONE HCL [Suspect]
     Active Substance: METHADONE HYDROCHLORIDE

REACTIONS (1)
  - Overdose [Recovered/Resolved]
